FAERS Safety Report 16956503 (Version 1)
Quarter: 2019Q4

REPORT INFORMATION
  Report Type: Report from Study
  Country: US (occurrence: US)
  Receive Date: 20191024
  Receipt Date: 20191024
  Transmission Date: 20200122
  Serious: Yes (Other)
  Sender: FDA-Public Use
  Company Number: US-ROCHE-2204517

PATIENT
  Sex: Male
  Weight: 80.3 kg

DRUGS (4)
  1. NUTROPIN AQ [Suspect]
     Active Substance: SOMATROPIN
     Indication: GROWTH HORMONE DEFICIENCY
  2. NUTROPIN AQ [Suspect]
     Active Substance: SOMATROPIN
     Indication: HYPOPITUITARISM
     Route: 058
     Dates: start: 201710
  3. ARIMIDEX [Concomitant]
     Active Substance: ANASTROZOLE
  4. ANASTROZOLE. [Concomitant]
     Active Substance: ANASTROZOLE
     Route: 048

REACTIONS (3)
  - Arrhythmia [Unknown]
  - Limb asymmetry [Unknown]
  - Hypertension [Unknown]
